FAERS Safety Report 6430149-3 (Version None)
Quarter: 2009Q4

REPORT INFORMATION
  Report Type: 
  Country: None (occurrence: None)
  Receive Date: 20091103
  Receipt Date: 20091021
  Transmission Date: 20100525
  Serious: Yes (Other)
  Sender: FDA-Public Use
  Company Number: 2009SP029250

PATIENT
  Age: 39 Year
  Sex: Female
  Weight: 58 kg

DRUGS (1)
  1. GRACIAL (DESLOGESTREL / ETHINYLESTRADIOL) (DESOGESTREL / ETHINYLESTRAD [Suspect]
     Indication: CONTRACEPTION
     Dosage: ;UNK ;PO ;UNK ;PO
     Route: 048
     Dates: start: 20090507, end: 20090512

REACTIONS (3)
  - BLISTER [None]
  - HEPATITIS [None]
  - VOMITING [None]
